FAERS Safety Report 23175280 (Version 1)
Quarter: 2023Q4

REPORT INFORMATION
  Report Type: Spontaneous
  Country: CN (occurrence: CN)
  Receive Date: 20231113
  Receipt Date: 20231113
  Transmission Date: 20240110
  Serious: Yes (Hospitalization, Other)
  Sender: FDA-Public Use
  Company Number: None

PATIENT
  Age: 2 Year
  Sex: Male
  Weight: 12 kg

DRUGS (14)
  1. CYCLOPHOSPHAMIDE [Suspect]
     Active Substance: CYCLOPHOSPHAMIDE
     Indication: B-cell type acute leukaemia
     Dosage: 0.52 G , ONE TIME IN ONE DAY, DILUTED WITH 100 ML/H OF 0.9% SODIUM CHLORIDE, 0H, 3H, 6H
     Route: 041
     Dates: start: 20230924, end: 20231024
  2. CYCLOPHOSPHAMIDE [Suspect]
     Active Substance: CYCLOPHOSPHAMIDE
     Indication: Acute lymphocytic leukaemia
  3. CYCLOPHOSPHAMIDE [Suspect]
     Active Substance: CYCLOPHOSPHAMIDE
     Indication: Chemotherapy
  4. MESNA [Suspect]
     Active Substance: MESNA
     Indication: B-cell type acute leukaemia
     Dosage: 100 MG, DILUTED WITH 20 ML OF 0.9% NS
     Route: 041
     Dates: start: 20230924
  5. MESNA [Suspect]
     Active Substance: MESNA
     Indication: Acute lymphocytic leukaemia
  6. SODIUM CHLORIDE [Suspect]
     Active Substance: SODIUM CHLORIDE
     Indication: Medication dilution
     Dosage: (0.9%, INJECTION), 100 ML/H, ONE TIME IN ONE DAY, USED TO DILUTE 0.52 G OF CYCLOPHOSPHAMIDE, 0H, 3H,
     Route: 041
     Dates: start: 20230924, end: 20231024
  7. SODIUM CHLORIDE [Suspect]
     Active Substance: SODIUM CHLORIDE
     Dosage: 20 ML, USED TO DILUTE 100 MG OF MESNA
     Route: 041
     Dates: start: 20230924
  8. SODIUM CHLORIDE [Suspect]
     Active Substance: SODIUM CHLORIDE
     Dosage: 2 ML, ONE TIME IN ONE DAY, USED TO DILUTE 0.039 G OF CYTARABINE
     Route: 037
     Dates: start: 20230926, end: 20230926
  9. DEXTROSE [Suspect]
     Active Substance: DEXTROSE\DEXTROSE MONOHYDRATE
     Indication: Medication dilution
     Dosage: (5%, INJECTION), 250 ML 60 ML/H, ONE TIME IN ONE DAY, USED TO DILUTE 0.039 G OF CYTARABINE
     Route: 041
     Dates: start: 20230926, end: 20231003
  10. CYTARABINE [Suspect]
     Active Substance: CYTARABINE
     Indication: B-cell type acute leukaemia
     Dosage: 0.039 G, ONE TIME IN ONE DAY, DILUTED WITH 2 ML OF 0.9% SODIUM CHLORIDE
     Route: 037
     Dates: start: 20230926, end: 20230926
  11. CYTARABINE [Suspect]
     Active Substance: CYTARABINE
     Indication: Acute lymphocytic leukaemia
     Dosage: 0.039 G, ONE TIME IN ONE DAY, DILUTED WITH 250 ML 60 ML/H OF 5% GLUCOSE
     Route: 041
     Dates: start: 20230926, end: 20231003
  12. CYTARABINE [Suspect]
     Active Substance: CYTARABINE
     Indication: Chemotherapy
  13. AZATHIOPRINE [Suspect]
     Active Substance: AZATHIOPRINE
     Indication: B-cell type acute leukaemia
     Dosage: 12.5 MG, QN
     Route: 048
     Dates: start: 20230924
  14. AZATHIOPRINE [Suspect]
     Active Substance: AZATHIOPRINE
     Indication: Acute lymphocytic leukaemia

REACTIONS (3)
  - Myelosuppression [Recovering/Resolving]
  - Anaemia [Recovering/Resolving]
  - Erythema [Unknown]

NARRATIVE: CASE EVENT DATE: 20230930
